FAERS Safety Report 4382032-5 (Version None)
Quarter: 2004Q2

REPORT INFORMATION
  Report Type: 
  Country: None (occurrence: None)
  Receive Date: 20040615
  Receipt Date: 20040528
  Transmission Date: 20050107
  Serious: Yes (Death, Hospitalization)
  Sender: FDA-Public Use
  Company Number: B0334157A

PATIENT
  Age: 52 Year
  Sex: Male

DRUGS (5)
  1. PAXIL [Suspect]
     Dosage: 10 MG
  2. GLIPIZIDE [Concomitant]
  3. METHADONE HCL [Concomitant]
  4. AMOXICILLIN TRIHYDRATE [Concomitant]
  5. ASPIRIN [Concomitant]

REACTIONS (12)
  - ACIDOSIS [None]
  - ANAEMIA [None]
  - ASCITES [None]
  - COMA [None]
  - CONVULSION [None]
  - DISSEMINATED INTRAVASCULAR COAGULATION [None]
  - EAR INFECTION [None]
  - HAEMATEMESIS [None]
  - HAEMORRHAGE [None]
  - SHOCK [None]
  - TREATMENT NONCOMPLIANCE [None]
  - VARICES OESOPHAGEAL [None]
